FAERS Safety Report 21053383 (Version 1)
Quarter: 2022Q3

REPORT INFORMATION
  Report Type: Spontaneous
  Country: CN (occurrence: CN)
  Receive Date: 20220707
  Receipt Date: 20220707
  Transmission Date: 20221026
  Serious: Yes (Other)
  Sender: FDA-Public Use
  Company Number: CN-NAPPMUNDI-GBR-2022-0099355

PATIENT
  Age: 66 Year
  Sex: Male
  Weight: 45 kg

DRUGS (2)
  1. OXYCODONE HYDROCHLORIDE [Suspect]
     Active Substance: OXYCODONE HYDROCHLORIDE
     Indication: Cancer pain
     Dosage: 30 MILLIGRAM, Q12H (EVERY 12 HOURS)
     Dates: start: 20220602, end: 20220622
  2. ADEMETIONINE BUTANEDISULFONATE [Suspect]
     Active Substance: ADEMETIONINE BUTANEDISULFONATE
     Indication: Blood bilirubin increased
     Dosage: 0.5 GRAM, DAILY
     Dates: start: 20220616, end: 20220622

REACTIONS (4)
  - Blood bilirubin increased [Unknown]
  - Pruritus [Recovering/Resolving]
  - Rash [Recovering/Resolving]
  - Erythema [Recovering/Resolving]

NARRATIVE: CASE EVENT DATE: 20220605
